FAERS Safety Report 7036389-7 (Version None)
Quarter: 2010Q4

REPORT INFORMATION
  Report Type: 
  Country: None (occurrence: None)
  Receive Date: 20101008
  Receipt Date: 20100930
  Transmission Date: 20110411
  Serious: Yes (Disabling)
  Sender: FDA-Public Use
  Company Number: US-AMGEN-KDL443831

PATIENT
  Sex: Female
  Weight: 101.7 kg

DRUGS (3)
  1. PROCRIT [Suspect]
     Indication: PRODUCT USED FOR UNKNOWN INDICATION
     Route: 058
     Dates: start: 20080101
  2. DILTIAZEM [Concomitant]
     Route: 048
  3. SIMVASTATIN [Concomitant]
     Route: 048

REACTIONS (3)
  - HEADACHE [None]
  - WALKING DISABILITY [None]
  - WEIGHT INCREASED [None]
